FAERS Safety Report 15998596 (Version 3)
Quarter: 2019Q1

REPORT INFORMATION
  Report Type: Spontaneous
  Country: US (occurrence: US)
  Receive Date: 20190223
  Receipt Date: 20190330
  Transmission Date: 20190418
  Serious: Yes (Hospitalization)
  Sender: FDA-Public Use
  Company Number: PHEH2019US007362

PATIENT
  Sex: Female

DRUGS (2)
  1. LENVATINIB [Suspect]
     Active Substance: LENVATINIB
     Indication: RENAL CANCER
     Dosage: 18 MG, QD
     Route: 048
  2. AFINITOR [Suspect]
     Active Substance: EVEROLIMUS
     Indication: RENAL CANCER
     Dosage: 5 MG, QD
     Route: 048

REACTIONS (8)
  - Nausea [Unknown]
  - Constipation [Not Recovered/Not Resolved]
  - Rash [Unknown]
  - Decreased appetite [Not Recovered/Not Resolved]
  - Protein deficiency [Unknown]
  - Platelet count increased [Unknown]
  - Vomiting [Unknown]
  - Diarrhoea [Unknown]
